FAERS Safety Report 4543231-2 (Version None)
Quarter: 2005Q1

REPORT INFORMATION
  Report Type: 
  Country: None (occurrence: None)
  Receive Date: 20050103
  Receipt Date: 20041130
  Transmission Date: 20050727
  Serious: No
  Sender: FDA-Public Use
  Company Number: FR-BRISTOL-MYERS SQUIBB COMPANY-12781225

PATIENT
  Age: 56 Year
  Sex: Female
  Weight: 38 kg

DRUGS (4)
  1. REYATAZ [Suspect]
     Indication: HIV INFECTION
     Route: 048
     Dates: start: 20040908, end: 20041124
  2. NORVIR [Concomitant]
     Route: 048
     Dates: start: 20040908, end: 20041124
  3. EPIVIR [Concomitant]
     Route: 048
     Dates: start: 20030415, end: 20041124
  4. VIREAD [Concomitant]
     Route: 048
     Dates: start: 20021002, end: 20041124

REACTIONS (2)
  - JAUNDICE [None]
  - TOXIC SKIN ERUPTION [None]
